FAERS Safety Report 14718896 (Version 1)
Quarter: 2018Q2

REPORT INFORMATION
  Report Type: Spontaneous
  Country: US (occurrence: US)
  Receive Date: 20180405
  Receipt Date: 20180405
  Transmission Date: 20180711
  Serious: Yes (Death, Hospitalization)
  Sender: FDA-Public Use
  Company Number: US-ROCHE-2096318

PATIENT
  Age: 79 Year
  Sex: Male

DRUGS (2)
  1. GAZYVA [Suspect]
     Active Substance: OBINUTUZUMAB
     Dosage: DAY 2 ;ONGOING: NO
     Route: 065
  2. GAZYVA [Suspect]
     Active Substance: OBINUTUZUMAB
     Indication: CHRONIC LYMPHOCYTIC LEUKAEMIA
     Dosage: DAY 1 ;ONGOING: NO
     Route: 065

REACTIONS (7)
  - Pyrexia [Unknown]
  - Ill-defined disorder [Unknown]
  - Chills [Unknown]
  - Malaise [Unknown]
  - Tremor [Unknown]
  - Tumour lysis syndrome [Fatal]
  - Diarrhoea [Unknown]
